FAERS Safety Report 21886748 (Version 1)
Quarter: 2023Q1

REPORT INFORMATION
  Report Type: Spontaneous
  Country: FR (occurrence: FR)
  Receive Date: 20230119
  Receipt Date: 20230119
  Transmission Date: 20230418
  Serious: Yes (Other)
  Sender: FDA-Public Use
  Company Number: None

PATIENT
  Age: 62 Year
  Sex: Female

DRUGS (4)
  1. KEYTRUDA [Suspect]
     Active Substance: PEMBROLIZUMAB
     Indication: Ovarian cancer
     Dosage: 200 MILLIGRAM/INFUSION
     Route: 042
     Dates: start: 20220510
  2. CARBOPLATIN [Suspect]
     Active Substance: CARBOPLATIN
     Indication: Ovarian cancer
     Dosage: 548 MG, ONCE
     Route: 042
     Dates: start: 20220413, end: 20220413
  3. PACLITAXEL [Suspect]
     Active Substance: PACLITAXEL
     Indication: Ovarian cancer
     Dosage: COMMENTS
     Route: 042
     Dates: start: 20220620, end: 20220620
  4. PACLITAXEL [Suspect]
     Active Substance: PACLITAXEL
     Dosage: 600 MILLIGRAM
     Route: 042
     Dates: start: 20220413

REACTIONS (1)
  - Neuropathy peripheral [Recovering/Resolving]

NARRATIVE: CASE EVENT DATE: 20220606
